FAERS Safety Report 9389659 (Version 2)
Quarter: 2013Q3

REPORT INFORMATION
  Report Type: Spontaneous
  Country: US (occurrence: US)
  Receive Date: 20130708
  Receipt Date: 20130904
  Transmission Date: 20140515
  Serious: No
  Sender: FDA-Public Use
  Company Number: US-AMGEN-USASP2013046028

PATIENT
  Age: 49 Year
  Sex: Female
  Weight: 56.23 kg

DRUGS (2)
  1. ENBREL [Suspect]
     Indication: PSORIASIS
     Dosage: 25 MG, 2 TIMES/WK
     Route: 058
     Dates: start: 20100101, end: 201304
  2. PREDNISONE [Concomitant]
     Dosage: 5 MG, QWK
     Route: 048
     Dates: start: 20130224

REACTIONS (6)
  - Skin plaque [Not Recovered/Not Resolved]
  - Tongue discolouration [Not Recovered/Not Resolved]
  - Glossodynia [Not Recovered/Not Resolved]
  - Tongue discolouration [Not Recovered/Not Resolved]
  - Skin ulcer [Not Recovered/Not Resolved]
  - Skin lesion [Not Recovered/Not Resolved]
